FAERS Safety Report 5774272-5 (Version None)
Quarter: 2008Q2

REPORT INFORMATION
  Report Type: 
  Country: None (occurrence: None)
  Receive Date: 20080616
  Receipt Date: 20080605
  Transmission Date: 20081010
  Serious: Yes (Death)
  Sender: FDA-Public Use
  Company Number: DE-AMGEN-UK285103

PATIENT
  Sex: Male

DRUGS (24)
  1. PANITUMUMAB [Suspect]
     Indication: SQUAMOUS CELL CARCINOMA
     Route: 042
     Dates: start: 20080416, end: 20080529
  2. VOLTAREN [Concomitant]
     Route: 048
     Dates: start: 20080416
  3. PANTOPRAZOLE SODIUM [Concomitant]
     Route: 048
     Dates: start: 20080416
  4. NITROLINGUAL [Concomitant]
     Route: 060
     Dates: start: 20080425
  5. ZOFRAN [Concomitant]
     Route: 048
     Dates: start: 20080517
  6. NOVALGIN [Concomitant]
     Route: 048
     Dates: start: 20080514
  7. LACTULOSE [Concomitant]
     Route: 048
     Dates: start: 20080514
  8. METOCLOPRAMIDE HYDROCHLORIDE [Concomitant]
     Route: 048
     Dates: start: 20080514
  9. SEVREDOL [Concomitant]
     Route: 048
     Dates: start: 20080514
  10. NOCTAMID [Concomitant]
     Route: 048
  11. MORONAL [Concomitant]
     Route: 048
     Dates: start: 20080515
  12. MORPHINE SULFATE [Concomitant]
     Route: 048
     Dates: start: 20080520
  13. ACETAMINOPHEN [Concomitant]
     Route: 048
     Dates: start: 20080522
  14. GLYCERIN [Concomitant]
     Route: 054
     Dates: start: 20080522
  15. SODIUM PICOSULFATE [Concomitant]
     Route: 048
     Dates: start: 20080522
  16. ZINACEF [Concomitant]
     Route: 042
     Dates: start: 20080528
  17. VANCOMYCIN [Concomitant]
     Route: 042
  18. TPN [Concomitant]
     Route: 042
     Dates: start: 20080528
  19. TAVANIC [Concomitant]
     Route: 042
     Dates: start: 20080528
  20. MAGNESIUM VERLA DRAGEES [Concomitant]
     Route: 048
     Dates: start: 20080523
  21. SANDOCAL [Concomitant]
     Route: 048
     Dates: start: 20080523
  22. CLEXANE [Concomitant]
     Route: 058
     Dates: start: 20080530
  23. DURAGESIC-100 [Concomitant]
     Route: 062
     Dates: start: 20080601
  24. LYRICA [Concomitant]
     Route: 048
     Dates: start: 20080531

REACTIONS (1)
  - CIRCULATORY COLLAPSE [None]
